FAERS Safety Report 20106264 (Version 1)
Quarter: 2021Q4

REPORT INFORMATION
  Report Type: Spontaneous
  Country: ZA (occurrence: ZA)
  Receive Date: 20211124
  Receipt Date: 20211124
  Transmission Date: 20220304
  Serious: Yes (Death, Other)
  Sender: FDA-Public Use
  Company Number: ZA-BoehringerIngelheim-2021-BI-140113

PATIENT
  Sex: Female

DRUGS (1)
  1. TELMISARTAN [Suspect]
     Active Substance: TELMISARTAN
     Indication: Product used for unknown indication
     Dosage: PRITOR 40 MG

REACTIONS (1)
  - Death [Fatal]
